FAERS Safety Report 23524186 (Version 2)
Quarter: 2024Q1

REPORT INFORMATION
  Report Type: Spontaneous
  Country: GR (occurrence: GR)
  Receive Date: 20240214
  Receipt Date: 20240216
  Transmission Date: 20240410
  Serious: Yes (Hospitalization)
  Sender: FDA-Public Use
  Company Number: GR-Giskit Pharma B.V. (NL)/ ExEmFoam Inc (USA)-2024GIS000001

PATIENT
  Age: 32 Year
  Sex: Female

DRUGS (1)
  1. EXEM FOAM [Suspect]
     Active Substance: GLYCERIN\HYDROXYETHYL CELLULOSE (5500 MPA.S AT 2%)\WATER
     Indication: Fallopian tube obstruction
     Dosage: 5-6 ML
     Route: 015
     Dates: start: 20240118, end: 20240118

REACTIONS (1)
  - Peritoneal disorder [Recovered/Resolved]

NARRATIVE: CASE EVENT DATE: 20240118
